FAERS Safety Report 20172125 (Version 1)
Quarter: 2021Q4

REPORT INFORMATION
  Report Type: Spontaneous
  Country: JP (occurrence: JP)
  Receive Date: 20211210
  Receipt Date: 20211210
  Transmission Date: 20220304
  Serious: Yes (Hospitalization, Other)
  Sender: FDA-Public Use
  Company Number: JP-GILEAD-2021-0560118

PATIENT
  Age: 70 Year
  Sex: Male

DRUGS (3)
  1. VEKLURY [Suspect]
     Active Substance: REMDESIVIR
     Indication: COVID-19 pneumonia
     Dosage: UNK
     Route: 041
  2. BARICITINIB [Concomitant]
     Active Substance: BARICITINIB
     Indication: COVID-19 pneumonia
     Route: 048
  3. NAFAMOSTAT [NAFAMOSTAT MESILATE] [Concomitant]
     Indication: COVID-19 pneumonia
     Route: 041

REACTIONS (2)
  - Acute myocardial infarction [Unknown]
  - Embolism [Unknown]
